FAERS Safety Report 4373344-X (Version None)
Quarter: 2004Q2

REPORT INFORMATION
  Report Type: 
  Country: None (occurrence: None)
  Receive Date: 20040603
  Receipt Date: 20040518
  Transmission Date: 20050107
  Serious: Yes (Hospitalization)
  Sender: FDA-Public Use
  Company Number: 198317

PATIENT
  Age: 18 Year
  Sex: Female
  Weight: 64.4108 kg

DRUGS (3)
  1. AVONEX [Suspect]
     Indication: MULTIPLE SCLEROSIS
     Dosage: 30 MCG QW IM
     Route: 030
     Dates: start: 20020101, end: 20040201
  2. AVONEX [Suspect]
     Indication: MULTIPLE SCLEROSIS
     Dosage: 30 MCG QW IM
     Route: 030
     Dates: start: 20040201
  3. ALBUTEROL [Concomitant]

REACTIONS (15)
  - ABDOMINAL PAIN LOWER [None]
  - APPENDICECTOMY [None]
  - APPETITE DISORDER [None]
  - ASTHMA [None]
  - BALANCE DISORDER [None]
  - CHEST DISCOMFORT [None]
  - CHILLS [None]
  - CONDITION AGGRAVATED [None]
  - DIZZINESS [None]
  - FALL [None]
  - INFLUENZA LIKE ILLNESS [None]
  - JOINT SPRAIN [None]
  - NASOPHARYNGITIS [None]
  - PAIN [None]
  - WEIGHT DECREASED [None]
